FAERS Safety Report 5626844-6 (Version None)
Quarter: 2008Q1

REPORT INFORMATION
  Report Type: 
  Country: None (occurrence: None)
  Receive Date: 20080212
  Receipt Date: 20080130
  Transmission Date: 20080703
  Serious: Yes (Other)
  Sender: FDA-Public Use
  Company Number: 2008S1001682

PATIENT
  Age: 70 Year
  Sex: Male

DRUGS (10)
  1. WARFARIN SODIUM [Suspect]
     Indication: DRUG USE FOR UNKNOWN INDICATION
  2. . [Suspect]
  3. SW [Concomitant]
  4. D [Concomitant]
  5. X [Concomitant]
  6. X [Concomitant]
  7. DS [Concomitant]
  8. D [Concomitant]
  9. D [Concomitant]
  10. DS [Concomitant]

REACTIONS (1)
  - NEPHRITIS INTERSTITIAL [None]
